FAERS Safety Report 22592379 (Version 1)
Quarter: 2023Q2

REPORT INFORMATION
  Report Type: Spontaneous
  Country: US (occurrence: US)
  Receive Date: 20230613
  Receipt Date: 20230613
  Transmission Date: 20230722
  Serious: No
  Sender: FDA-Public Use
  Company Number: US-GLENMARK PHARMACEUTICALS-2022GMK073926

PATIENT

DRUGS (4)
  1. TACROLIMUS [Suspect]
     Active Substance: TACROLIMUS
     Indication: Rash
     Dosage: TO BE APPLIED TWICE DAILY, BID
     Route: 061
  2. GABAPENTIN [Concomitant]
     Active Substance: GABAPENTIN
     Indication: Neuralgia
     Dosage: 2 DOSAGE FORM, TID (3X A DAY), STARTED USING IT A COUPLE OF YEARS AGO
     Route: 048
  3. METOPROLOL [Concomitant]
     Active Substance: METOPROLOL
     Indication: Hypertension
     Dosage: 1 DOSAGE FORM, QD, STARTED USING IS A YEAR OR TWO AGO
     Route: 048
  4. AMMONIUM LACTATE [Concomitant]
     Active Substance: AMMONIUM LACTATE
     Indication: Rash
     Dosage: UNK
     Route: 065

REACTIONS (1)
  - Intercepted product prescribing error [Unknown]
